FAERS Safety Report 5591385-1 (Version None)
Quarter: 2008Q1

REPORT INFORMATION
  Report Type: 
  Country: None (occurrence: None)
  Receive Date: 20080111
  Receipt Date: 20071228
  Transmission Date: 20080703
  Serious: Yes (Hospitalization, Disabling, Other)
  Sender: FDA-Public Use
  Company Number: FABR-12258

PATIENT
  Age: 52 Year
  Sex: Male
  Weight: 71.8 kg

DRUGS (1)
  1. FABRAZYME [Suspect]
     Indication: FABRY'S DISEASE
     Dosage: 75 MG, Q2W, INTRAVENOUS
     Route: 042
     Dates: start: 20050101

REACTIONS (11)
  - AGEUSIA [None]
  - AREFLEXIA [None]
  - ASTHENIA [None]
  - CEREBRAL DISORDER [None]
  - CRANIAL OPERATION [None]
  - EAR INFECTION [None]
  - GUILLAIN-BARRE SYNDROME [None]
  - HEARING IMPAIRED [None]
  - HYPOAESTHESIA [None]
  - ILEUS [None]
  - MENINGITIS PNEUMOCOCCAL [None]
